FAERS Safety Report 9227240 (Version 3)
Quarter: 2013Q2

REPORT INFORMATION
  Report Type: Spontaneous
  Country: GB (occurrence: GB)
  Receive Date: 20130412
  Receipt Date: 20130521
  Transmission Date: 20140414
  Serious: Yes (Hospitalization, Other)
  Sender: FDA-Public Use
  Company Number: PHFR2013GB002148

PATIENT
  Age: 76 Year
  Sex: Female

DRUGS (1)
  1. CLOZARIL [Suspect]
     Indication: SCHIZOPHRENIA
     Dosage: UNK
     Route: 048
     Dates: start: 20051111, end: 20130422

REACTIONS (8)
  - Hypophagia [Unknown]
  - Malaise [Unknown]
  - Psychotic disorder [Unknown]
  - Bladder cancer [Unknown]
  - Infection [Unknown]
  - C-reactive protein increased [Unknown]
  - White blood cell count increased [Unknown]
  - Neutrophil count increased [Unknown]
